FAERS Safety Report 19376350 (Version 4)
Quarter: 2022Q1

REPORT INFORMATION
  Report Type: Spontaneous
  Country: DE (occurrence: DE)
  Receive Date: 20210605
  Receipt Date: 20220217
  Transmission Date: 20220423
  Serious: Yes (Hospitalization, Other)
  Sender: FDA-Public Use
  Company Number: DE-002147023-NVSC2020DE331351

PATIENT
  Age: 78 Year
  Sex: Female
  Weight: 61 kg

DRUGS (12)
  1. ANASTROZOLE [Suspect]
     Active Substance: ANASTROZOLE
     Indication: Breast cancer metastatic
     Dosage: 1 MILLIGRAM, ONCE A DAY (DAILY IN THE EVENING))
     Route: 048
     Dates: start: 20201106
  2. DENOSUMAB [Suspect]
     Active Substance: DENOSUMAB
     Indication: Product used for unknown indication
     Dosage: UNK
     Route: 065
  3. KISQALI [Suspect]
     Active Substance: RIBOCICLIB
     Indication: Breast cancer metastatic
     Dosage: 600 MILLIGRAM, ONCE A DAY ((SCHEMA 21 DAYS INTAKE, 7 DAYS PAUSE/DAILY))
     Route: 048
     Dates: start: 20201116, end: 20201203
  4. KISQALI [Suspect]
     Active Substance: RIBOCICLIB
     Dosage: 400 MILLIGRAM, ONCE A DAY
     Route: 048
     Dates: start: 20201218, end: 20201230
  5. KISQALI [Suspect]
     Active Substance: RIBOCICLIB
     Dosage: 400 MILLIGRAM, ONCE A DAY
     Route: 048
     Dates: start: 20210128
  6. ATORVASTATIN [Concomitant]
     Active Substance: ATORVASTATIN
     Indication: Product used for unknown indication
     Dosage: 10 MILLIGRAM  (DAILY IN THE EVENING))
     Route: 065
  7. TILIDINE [Concomitant]
     Active Substance: TILIDINE
     Indication: Product used for unknown indication
     Dosage: UNK (50/4 MG DAILY AT NIGHT)
     Route: 065
  8. BISOPROLOL [Concomitant]
     Active Substance: BISOPROLOL
     Indication: Product used for unknown indication
     Dosage: 5 MILLIGRAM (DAILY ? IN THE MORNING AND ? IN THE EVENING)
     Route: 065
  9. CHOLECALCIFEROL [Concomitant]
     Active Substance: CHOLECALCIFEROL
     Indication: Product used for unknown indication
     Dosage: 20 INTERNATIONAL UNIT, EVERY WEEK (20.000 IU, QW)
     Route: 065
  10. ADALAT [Concomitant]
     Active Substance: NIFEDIPINE
     Indication: Product used for unknown indication
     Dosage: 5 MILLIGRAM (REQUIRED)
     Route: 065
  11. RAMIPRIL [Concomitant]
     Active Substance: RAMIPRIL
     Indication: Product used for unknown indication
     Dosage: 2.5 MILLIGRAM  (DAILY IN THE MORNING AND IN THE EVENING)
     Route: 065
  12. NALOXONE [Concomitant]
     Active Substance: NALOXONE
     Indication: Product used for unknown indication
     Dosage: UNK (50/4 MG DAILY AT NIGHT)
     Route: 065

REACTIONS (16)
  - Electrocardiogram repolarisation abnormality [Recovering/Resolving]
  - Hypertensive crisis [Recovering/Resolving]
  - Aortic valve incompetence [Not Recovered/Not Resolved]
  - Mitral valve incompetence [Unknown]
  - Coronary artery stenosis [Recovered/Resolved]
  - Brain natriuretic peptide increased [Recovered/Resolved]
  - Sinus arrhythmia [Recovered/Resolved]
  - Sinus bradycardia [Recovered/Resolved with Sequelae]
  - Atrioventricular block first degree [Recovered/Resolved]
  - Left ventricular hypertrophy [Recovering/Resolving]
  - Irritable bowel syndrome [Unknown]
  - Electrocardiogram QT prolonged [Recovering/Resolving]
  - Dyslipidaemia [Unknown]
  - Hypertension [Unknown]
  - Hypoaesthesia teeth [Recovering/Resolving]
  - COVID-19 [Recovered/Resolved]

NARRATIVE: CASE EVENT DATE: 20201201
